FAERS Safety Report 9206331 (Version 1)
Quarter: 2013Q2

REPORT INFORMATION
  Report Type: Spontaneous
  Country: US (occurrence: None)
  Receive Date: 20130401
  Receipt Date: 20130401
  Transmission Date: 20140414
  Serious: Yes (Hospitalization)
  Sender: FDA-Public Use
  Company Number: None

PATIENT
  Age: 64 Year
  Sex: Male
  Weight: 86.5 kg

DRUGS (4)
  1. ERBITUX (CETUXIMAB) [Suspect]
  2. AMLODIPINE [Concomitant]
  3. LOSARTAN [Concomitant]
  4. METOPROLOL [Concomitant]

REACTIONS (5)
  - Blood pressure increased [None]
  - Dizziness [None]
  - Renal failure acute [None]
  - Nephrolithiasis [None]
  - Dehydration [None]
